FAERS Safety Report 5907488-5 (Version None)
Quarter: 2008Q4

REPORT INFORMATION
  Report Type: 
  Country: None (occurrence: None)
  Receive Date: 20081003
  Receipt Date: 20080924
  Transmission Date: 20090506
  Serious: Yes (Other)
  Sender: FDA-Public Use
  Company Number: SE-TEVA-178007ISR

PATIENT
  Sex: Female

DRUGS (5)
  1. METHOTREXATE SODIUM TABLETS, 2.5 MG [Suspect]
     Indication: RHEUMATOID ARTHRITIS
     Route: 048
     Dates: start: 19980101, end: 20051001
  2. FOLACIN [Concomitant]
     Route: 048
  3. LEVOTHYROXINE SODIUM [Concomitant]
     Route: 048
  4. CHLOROQUINE PHOSPHATE [Concomitant]
     Route: 048
  5. IBUPROFEN [Concomitant]
     Route: 048

REACTIONS (1)
  - LEUKAEMIA [None]
